FAERS Safety Report 7059643-1 (Version None)
Quarter: 2010Q4

REPORT INFORMATION
  Report Type: 
  Country: None (occurrence: None)
  Receive Date: 20101025
  Receipt Date: 20101012
  Transmission Date: 20110411
  Serious: Yes (Other)
  Sender: FDA-Public Use
  Company Number: CA-ELI_LILLY_AND_COMPANY-CA201010003445

PATIENT
  Age: 38 Year
  Sex: Male

DRUGS (2)
  1. CYMBALTA [Suspect]
     Indication: DEPRESSION
     Dosage: 120 MG, DAILY (1/D)
     Dates: start: 20100101
  2. CYMBALTA [Suspect]
     Dosage: UNK, DAILY (1/D)

REACTIONS (3)
  - HEPATIC ENZYME ABNORMAL [None]
  - MALAISE [None]
  - MEDICATION ERROR [None]
